FAERS Safety Report 23464183 (Version 1)
Quarter: 2024Q1

REPORT INFORMATION
  Report Type: Spontaneous
  Country: US (occurrence: US)
  Receive Date: 20240201
  Receipt Date: 20240201
  Transmission Date: 20240410
  Serious: No
  Sender: FDA-Public Use
  Company Number: US-PERRIGO-23US004108

PATIENT
  Sex: Male

DRUGS (5)
  1. OMEPRAZOLE [Suspect]
     Active Substance: OMEPRAZOLE
     Indication: Oesophageal discomfort
     Dosage: 20 MG, QD
     Route: 048
     Dates: start: 20080304
  2. OMEPRAZOLE [Suspect]
     Active Substance: OMEPRAZOLE
     Dosage: 20 MG, QD
     Route: 048
  3. OMEPRAZOLE [Suspect]
     Active Substance: OMEPRAZOLE
     Dosage: 0.5 TABLET, QD
     Route: 048
  4. TUMS [Concomitant]
     Active Substance: CALCIUM CARBONATE
     Indication: Osteoporosis
     Dosage: UNK
     Route: 065
  5. ROLAIDS EXTRA STRENGTH SOFTCHEWS [Concomitant]
     Indication: Osteoporosis
     Dosage: UNK
     Route: 065

REACTIONS (6)
  - Dyspepsia [Not Recovered/Not Resolved]
  - Osteoporosis [Not Recovered/Not Resolved]
  - Withdrawal syndrome [Recovered/Resolved]
  - Off label use [Recovered/Resolved]
  - Wrong technique in product usage process [Unknown]
  - Incorrect product administration duration [Unknown]

NARRATIVE: CASE EVENT DATE: 20080304
